FAERS Safety Report 11559871 (Version 1)
Quarter: 2015Q3

REPORT INFORMATION
  Report Type: Spontaneous
  Country: EG (occurrence: EG)
  Receive Date: 20150928
  Receipt Date: 20150928
  Transmission Date: 20151125
  Serious: Yes (Death, Hospitalization, Other)
  Sender: FDA-Public Use
  Company Number: EG-NOVOPROD-464451

PATIENT
  Age: 58 Year
  Sex: Female
  Weight: 160 kg

DRUGS (1)
  1. MIXTARD 30 HM PENFILL [Suspect]
     Active Substance: INSULIN HUMAN
     Indication: DIABETES MELLITUS
     Dosage: 20 IU/MORNING + SOMETIMES 10 IU/NIGHT + SOMETIMES NO DOSE AT NIGHT
     Route: 058
     Dates: end: 20150412

REACTIONS (2)
  - Blood glucose fluctuation [Not Recovered/Not Resolved]
  - Generalised oedema [Fatal]

NARRATIVE: CASE EVENT DATE: 2015
